FAERS Safety Report 5138812-1 (Version None)
Quarter: 2006Q4

REPORT INFORMATION
  Report Type: 
  Country: None (occurrence: None)
  Receive Date: 20061030
  Receipt Date: 20060828
  Transmission Date: 20070319
  Serious: Yes (Death, Life-Threatening, Hospitalization, Other)
  Sender: FDA-Public Use
  Company Number: US-PURDUE-USA_2006_0025102

PATIENT
  Age: 20 Year
  Sex: Male

DRUGS (2)
  1. OXYCONTIN [Suspect]
     Indication: DRUG ABUSER
     Dosage: UNK, UNK
  2. COCAINE [Suspect]
     Indication: DRUG ABUSER
     Dosage: UNK, UNK

REACTIONS (2)
  - BRAIN DEATH [None]
  - COMA [None]
